FAERS Safety Report 6907708-4 (Version None)
Quarter: 2010Q3

REPORT INFORMATION
  Report Type: 
  Country: None (occurrence: None)
  Receive Date: 20100805
  Receipt Date: 20100728
  Transmission Date: 20110219
  Serious: Yes (Other)
  Sender: FDA-Public Use
  Company Number: CN-ASTRAZENECA-2010SE35123

PATIENT
  Age: 24 Year
  Sex: Female
  Weight: 46 kg

DRUGS (1)
  1. PROPOFOL [Suspect]
     Indication: ABORTION INDUCED
     Route: 042

REACTIONS (2)
  - RESPIRATORY DEPRESSION [None]
  - SOMATOFORM DISORDER NEUROLOGIC [None]
